FAERS Safety Report 7085499-7 (Version None)
Quarter: 2010Q4

REPORT INFORMATION
  Report Type: 
  Country: None (occurrence: None)
  Receive Date: 20101105
  Receipt Date: 20101103
  Transmission Date: 20110411
  Serious: Yes (Life-Threatening, Hospitalization, Other)
  Sender: FDA-Public Use
  Company Number: NL-MPIJNJ-2007_03720

PATIENT

DRUGS (20)
  1. VELCADE [Suspect]
     Indication: MULTIPLE MYELOMA
     Dosage: 2.0 MG, UNK
     Route: 042
     Dates: start: 20071022, end: 20071101
  2. VELCADE [Suspect]
     Dosage: 1.95 UNK, UNK
     Route: 042
     Dates: start: 20071227, end: 20080107
  3. DEXAMETHASONE [Suspect]
     Indication: MULTIPLE MYELOMA
     Dosage: 40 MG, UNK
     Route: 048
     Dates: start: 20071022, end: 20071110
  4. DEXAMETHASONE [Suspect]
     Dosage: 40 UNK, UNK
     Route: 048
     Dates: start: 20071227
  5. ADRIAMYCIN PFS [Suspect]
     Indication: MULTIPLE MYELOMA
     Dosage: 20 MG, UNK
     Route: 042
     Dates: start: 20071022, end: 20071025
  6. ADRIAMYCIN PFS [Suspect]
     Dosage: 20 UNK, UNK
     Route: 042
     Dates: start: 20071227
  7. BACTRIMEL [Concomitant]
     Dosage: 960.00 MG, UNK
     Route: 048
     Dates: start: 20071022, end: 20071104
  8. DIFLUCAN [Concomitant]
     Dosage: 200.00 MG, UNK
     Route: 048
     Dates: start: 20071022, end: 20071104
  9. DIFLUCAN [Concomitant]
     Dosage: UNK
  10. ONDANSETRON [Concomitant]
     Dosage: 8.00 MG, UNK
     Route: 042
     Dates: start: 20071022, end: 20071022
  11. SINTROM [Concomitant]
     Dosage: UNK
     Dates: end: 20080107
  12. SELOKEN [Concomitant]
     Indication: HYPERTENSION
     Dosage: 50 MG, UNK
     Route: 048
     Dates: end: 20071120
  13. SELOKEN [Concomitant]
     Dosage: 50 MG, UNK
     Route: 048
     Dates: end: 20080108
  14. PANTOZOL                           /01263202/ [Concomitant]
     Indication: PROPHYLAXIS
     Dosage: 40 MG, UNK
     Route: 048
     Dates: start: 20071105, end: 20071120
  15. FLUCONAZOLE [Concomitant]
     Indication: PROPHYLAXIS
     Dosage: 200 MG, UNK
     Route: 048
     Dates: end: 20071120
  16. FLUCONAZOLE [Concomitant]
     Dosage: 200 UNK, UNK
     Route: 048
     Dates: end: 20080108
  17. COTRIM [Concomitant]
     Indication: PROPHYLAXIS
     Dosage: 960 MG, UNK
     Route: 048
     Dates: end: 20071120
  18. COTRIM [Concomitant]
     Dosage: 960 UNK, UNK
     Route: 048
     Dates: end: 20080108
  19. APD [Concomitant]
     Dosage: 90 MG, UNK
     Route: 042
     Dates: end: 20071227
  20. ALLOPURINOL [Concomitant]
     Dosage: UNK
     Dates: end: 20080108

REACTIONS (3)
  - PARAESTHESIA [None]
  - PEPTIC ULCER HAEMORRHAGE [None]
  - VOMITING [None]
